FAERS Safety Report 9320413 (Version 2)
Quarter: 2013Q3

REPORT INFORMATION
  Report Type: Spontaneous
  Country: US (occurrence: US)
  Receive Date: 20130530
  Receipt Date: 20130924
  Transmission Date: 20140515
  Serious: Yes (Hospitalization)
  Sender: FDA-Public Use
  Company Number: US-B.I. PHARMACEUTICALS,INC./RIDGEFIELD-2013-BI-14584BP

PATIENT
  Age: 48 Year
  Sex: Female
  Weight: 77.25 kg

DRUGS (15)
  1. PRADAXA [Suspect]
     Indication: ATRIAL FIBRILLATION
     Dosage: 300 MG
     Route: 048
     Dates: start: 20110314, end: 20111016
  2. ABILIFY [Concomitant]
     Dosage: 30 MG
     Route: 048
  3. AMBIEN [Concomitant]
     Indication: SLEEP DISORDER
     Route: 048
  4. CYANOCOBALAMIN [Concomitant]
     Dosage: 1000 MCG
     Route: 048
  5. CITRACAL + D [Concomitant]
     Route: 048
  6. COREG [Concomitant]
     Dosage: 25 MG
     Route: 048
  7. CRANBERRY-PROBIOTICS-VITAMIN C [Concomitant]
     Dosage: 8400 MG
     Route: 048
  8. HOMEOPATHIC BV [Concomitant]
     Route: 048
  9. KIDS VITAMIN D3 [Concomitant]
     Dosage: 2000 U
     Route: 048
  10. MULTIVITAMIN SUPPLEMENT [Concomitant]
     Route: 048
  11. OS-CAL [Concomitant]
     Route: 048
  12. PROVIGIL [Concomitant]
     Route: 048
  13. DIGOXIN [Concomitant]
     Dosage: 250 MCG
     Route: 048
  14. DOXEPIN [Concomitant]
     Dosage: 10 MG
     Route: 048
  15. IRON [Concomitant]
     Dosage: 650 MG
     Route: 048

REACTIONS (1)
  - Gastrointestinal haemorrhage [Recovered/Resolved]
